FAERS Safety Report 9618426 (Version 2)
Quarter: 2013Q4

REPORT INFORMATION
  Report Type: Spontaneous
  Country: US (occurrence: US)
  Receive Date: 20131014
  Receipt Date: 20131111
  Transmission Date: 20140711
  Serious: Yes (Death)
  Sender: FDA-Public Use
  Company Number: US-CELGENEUS-163-21660-13101359

PATIENT
  Age: 65 Year
  Sex: Male

DRUGS (2)
  1. ABRAXANE [Suspect]
     Indication: PANCREATIC CARCINOMA METASTATIC
     Route: 041
     Dates: start: 20130829, end: 20130829
  2. GEMZAR [Concomitant]
     Indication: NEOPLASM MALIGNANT
     Route: 041
     Dates: start: 20130829, end: 20130829

REACTIONS (1)
  - Pancreatic carcinoma metastatic [Fatal]
